FAERS Safety Report 6404624-1 (Version None)
Quarter: 2009Q4

REPORT INFORMATION
  Report Type: 
  Country: None (occurrence: None)
  Receive Date: 20091016
  Receipt Date: 20091008
  Transmission Date: 20100525
  Serious: Yes (Hospitalization)
  Sender: FDA-Public Use
  Company Number: CZ-ROCHE-657946

PATIENT
  Age: 32 Year
  Sex: Female

DRUGS (13)
  1. CLONAZEPAM [Suspect]
     Indication: ANTIDEPRESSANT THERAPY
     Route: 065
  2. CLONAZEPAM [Suspect]
     Route: 065
  3. CLONAZEPAM [Suspect]
     Route: 065
  4. CLONAZEPAM [Suspect]
     Route: 065
  5. FLUOXETINE [Suspect]
     Indication: ANTIDEPRESSANT THERAPY
     Route: 065
  6. MILNACIPRAN [Suspect]
     Indication: ANTIDEPRESSANT THERAPY
     Route: 065
  7. MILNACIPRAN [Suspect]
     Route: 065
  8. PAROXETINE [Suspect]
     Indication: ANTIDEPRESSANT THERAPY
     Dosage: UPTO 60 MG DAILY
     Route: 065
  9. PAROXETINE [Suspect]
     Route: 065
  10. VENLAFAXINE [Suspect]
     Indication: ANTIDEPRESSANT THERAPY
     Dosage: DOSE: UPTO 225 MG DAILY
     Route: 065
  11. ZIPRASIDONE HCL [Suspect]
     Route: 065
  12. DIBENZEPINE [Suspect]
     Route: 065
  13. MIRTAZAPINE [Suspect]
     Route: 065

REACTIONS (2)
  - DEPERSONALISATION [None]
  - DEPRESSION [None]
